FAERS Safety Report 8048568-0 (Version None)
Quarter: 2012Q1

REPORT INFORMATION
  Report Type: 
  Country: None (occurrence: None)
  Receive Date: 20120117
  Receipt Date: 20120109
  Transmission Date: 20120608
  Serious: Yes (Other)
  Sender: FDA-Public Use
  Company Number: IT-BRISTOL-MYERS SQUIBB COMPANY-16341331

PATIENT
  Age: 64 Year
  Sex: Female

DRUGS (8)
  1. ORENCIA [Suspect]
     Indication: RHEUMATOID ARTHRITIS
     Dosage: INTERRUPTED ON 23NOV2011
     Dates: start: 20110914
  2. ATENOLOL [Concomitant]
  3. LOSARTAN POTASSIUM [Concomitant]
     Route: 048
  4. MEDROL [Concomitant]
  5. METFORMIN HCL [Concomitant]
     Indication: TYPE 2 DIABETES MELLITUS
     Dosage: 1DF:2 UNITS  METFORMIN MYLAN 1 G TABS
  6. OMEPRAZOLE [Concomitant]
  7. CALCIUM CARBONATE [Concomitant]
     Dosage: CACIT VITAMIN D3 SACHETS
  8. FOSAMAX [Concomitant]
     Dosage: TABS

REACTIONS (1)
  - NEPHROTIC SYNDROME [None]
